FAERS Safety Report 7279096-8 (Version None)
Quarter: 2011Q1

REPORT INFORMATION
  Report Type: 
  Country: None (occurrence: None)
  Receive Date: 20110207
  Receipt Date: 20110203
  Transmission Date: 20110831
  Serious: Yes (Death)
  Sender: FDA-Public Use
  Company Number: PHHY2011US08800

PATIENT
  Sex: Male

DRUGS (7)
  1. PROCHLORPERAZINE [Concomitant]
  2. ACYCLOVIR [Concomitant]
  3. MULTI-VITAMIN [Concomitant]
  4. BACTRIM [Concomitant]
  5. SIMVASTATIN [Concomitant]
  6. MAGNESIUM [Concomitant]
  7. EXJADE [Suspect]
     Dosage: 500 MG, UNK
     Route: 048

REACTIONS (1)
  - DEATH [None]
